FAERS Safety Report 4921521-9 (Version None)
Quarter: 2006Q1

REPORT INFORMATION
  Report Type: 
  Country: None (occurrence: None)
  Receive Date: 20060221
  Receipt Date: 20060206
  Transmission Date: 20060701
  Serious: Yes (Death)
  Sender: FDA-Public Use
  Company Number: 200602IM000141

PATIENT
  Age: 21 Month
  Sex: Female

DRUGS (1)
  1. IMUKIN (INTERFERON GAMMA-1B) [Suspect]
     Indication: BOVINE TUBERCULOSIS
     Dosage: SEE IMAGE

REACTIONS (8)
  - ASCITES [None]
  - DRUG INEFFECTIVE [None]
  - GROWTH RETARDATION [None]
  - LYMPHADENITIS [None]
  - MULTIPLE-DRUG RESISTANCE [None]
  - PYREXIA [None]
  - RETROPERITONEAL ABSCESS [None]
  - WEIGHT INCREASED [None]
